FAERS Safety Report 20496344 (Version 2)
Quarter: 2022Q2

REPORT INFORMATION
  Report Type: Report from Study
  Country: CN (occurrence: CN)
  Receive Date: 20220221
  Receipt Date: 20220405
  Transmission Date: 20220721
  Serious: Yes (Hospitalization, Other)
  Sender: FDA-Public Use
  Company Number: CN-BRISTOL-MYERS SQUIBB COMPANY-BMS-2022-022396

PATIENT
  Age: 57 Year
  Sex: Female

DRUGS (2)
  1. NIVOLUMAB [Suspect]
     Active Substance: NIVOLUMAB
     Indication: Gastric cancer
     Dosage: 200 MILLIGRAM, Q2WK
     Route: 041
     Dates: start: 20210618
  2. NIVOLUMAB [Suspect]
     Active Substance: NIVOLUMAB
     Indication: Gastric cancer
     Dosage: 200 MILLIGRAM, Q2WK
     Route: 041
     Dates: start: 20210618

REACTIONS (4)
  - Hypokalaemia [Recovering/Resolving]
  - Urinary tract infection [Unknown]
  - Bladder dysfunction [Unknown]
  - Haematuria [Unknown]

NARRATIVE: CASE EVENT DATE: 20210730
